FAERS Safety Report 7575203-8 (Version None)
Quarter: 2011Q2

REPORT INFORMATION
  Report Type: 
  Country: None (occurrence: None)
  Receive Date: 20110627
  Receipt Date: 20110616
  Transmission Date: 20111010
  Serious: Yes (Hospitalization)
  Sender: FDA-Public Use
  Company Number: FR-UCBSA-034417

PATIENT
  Sex: Male

DRUGS (5)
  1. KEPPRA [Suspect]
     Route: 048
     Dates: start: 20050101, end: 20110326
  2. PRAVASTATIN [Concomitant]
  3. DEPAKENE [Concomitant]
     Route: 048
     Dates: start: 20050101
  4. ASPIRIN [Concomitant]
  5. ACETAMINOPHEN [Concomitant]

REACTIONS (1)
  - THROMBOCYTOPENIA [None]
